FAERS Safety Report 8844701 (Version 1)
Quarter: 2012Q4

REPORT INFORMATION
  Report Type: Spontaneous
  Country: US (occurrence: None)
  Receive Date: 20121016
  Receipt Date: 20121016
  Transmission Date: 20130627
  Serious: Yes (Hospitalization)
  Sender: FDA-Public Use
  Company Number: None

PATIENT
  Age: 51 Year
  Sex: Female
  Weight: 70.4 kg

DRUGS (4)
  1. HEMATIN [Suspect]
     Indication: IRON SUPPLEMENTATION
     Dates: start: 20120628
  2. DIOVAN [Concomitant]
  3. SYNTHROID [Concomitant]
  4. MEGACE [Concomitant]

REACTIONS (1)
  - Hypersensitivity [None]
